FAERS Safety Report 5195202-3 (Version None)
Quarter: 2006Q4

REPORT INFORMATION
  Report Type: 
  Country: None (occurrence: None)
  Receive Date: 20061130
  Receipt Date: 20060621
  Transmission Date: 20070319
  Serious: Yes (Other)
  Sender: FDA-Public Use
  Company Number: WAES 0606USA04251

PATIENT
  Age: 79 Year
  Sex: Male
  Weight: 56.6996 kg

DRUGS (3)
  1. FOSAMAX [Suspect]
     Indication: OSTEOPOROSIS
     Dosage: 70 MG/WKY/PO
     Route: 048
     Dates: start: 20020101
  2. ACTONEL [Concomitant]
  3. PREDNISONE 50MG TAB [Concomitant]

REACTIONS (1)
  - OSTEONECROSIS [None]
